FAERS Safety Report 16396698 (Version 1)
Quarter: 2019Q2

REPORT INFORMATION
  Report Type: Spontaneous
  Country: US (occurrence: US)
  Receive Date: 20190606
  Receipt Date: 20190606
  Transmission Date: 20190711
  Serious: Yes (Hospitalization)
  Sender: FDA-Public Use
  Company Number: US-ROCHE-2135570

PATIENT
  Age: 58 Year
  Sex: Female
  Weight: 48.4 kg

DRUGS (4)
  1. METHYLPREDNISOLONE. [Suspect]
     Active Substance: METHYLPREDNISOLONE
     Indication: ACUTE GRAFT VERSUS HOST DISEASE
     Dosage: ON 27/APR/2018, SHE RECEIVED LAST DOSE OF METHYLPREDNISOLONE PRIOR TO SERIOUS ADVERSE EVENT ONSET.
     Route: 048
     Dates: start: 20180321
  2. VALGANCICLOVIR. [Suspect]
     Active Substance: VALGANCICLOVIR
     Indication: CYTOMEGALOVIRUS INFECTION
     Route: 065
     Dates: start: 20180420, end: 20180430
  3. INCB039110 [Suspect]
     Active Substance: ITACITINIB
     Indication: ACUTE GRAFT VERSUS HOST DISEASE
     Dosage: ON 27/APR/2018, SHE RECEIVED LAST DOSE OF ITACITINIB PRIOR TO SERIOUS ADVERSE EVENT ONSET.
     Route: 048
     Dates: start: 20180323, end: 20180420
  4. INCB039110 [Suspect]
     Active Substance: ITACITINIB
     Route: 065
     Dates: start: 20180421, end: 20180430

REACTIONS (1)
  - Pancytopenia [Recovering/Resolving]

NARRATIVE: CASE EVENT DATE: 20180427
